FAERS Safety Report 22356653 (Version 2)
Quarter: 2023Q2

REPORT INFORMATION
  Report Type: Report from Study
  Country: US (occurrence: US)
  Receive Date: 20230523
  Receipt Date: 20230530
  Transmission Date: 20230722
  Serious: Yes (Hospitalization)
  Sender: FDA-Public Use
  Company Number: US-PFIZER INC-US-GBT-019805

PATIENT
  Age: 23 Year
  Sex: Male

DRUGS (14)
  1. VOXELOTOR [Suspect]
     Active Substance: VOXELOTOR
     Indication: Anaemia
     Dosage: 1500 MG, 1X/DAY
     Dates: start: 20200109
  2. VOXELOTOR [Suspect]
     Active Substance: VOXELOTOR
     Indication: Sickle cell disease
  3. MS CONTIN [Concomitant]
     Active Substance: MORPHINE SULFATE
     Indication: Sickle cell disease
     Dosage: 30 MG, 2X/DAY
     Route: 048
     Dates: start: 20191213, end: 20220520
  4. GLUTAMINE [ALANYL GLUTAMINE] [Concomitant]
     Indication: Sickle cell disease
     Dosage: 10 G, 2X/DAY
     Route: 048
     Dates: start: 20190603
  5. HYDROXYUREA [Concomitant]
     Active Substance: HYDROXYUREA
     Indication: Sickle cell disease
     Dosage: 1500 MG, 1X/DAY
     Route: 048
     Dates: start: 20160926
  6. OXYCODONE [Concomitant]
     Active Substance: OXYCODONE
     Indication: Sickle cell disease
     Dosage: 10 MG, Q4H PRN
     Route: 048
     Dates: start: 20160926, end: 20201106
  7. OXYCODONE [Concomitant]
     Active Substance: OXYCODONE
     Dosage: 15 MG, Q4H PRN
     Route: 048
     Dates: start: 20201106, end: 20211220
  8. TOZINAMERAN [Concomitant]
     Active Substance: TOZINAMERAN
     Indication: Prophylaxis
     Dosage: 30 UG, SINGLE
     Route: 030
     Dates: start: 20210818, end: 20210818
  9. FLEXERIL [Concomitant]
     Active Substance: CYCLOBENZAPRINE HYDROCHLORIDE
     Indication: Sickle cell disease
     Dosage: BID PRN
     Route: 048
     Dates: start: 20210507, end: 20210606
  10. IBUPROFEN [Concomitant]
     Active Substance: IBUPROFEN
     Indication: Sickle cell disease
     Dosage: Q6H PRN
     Route: 048
     Dates: start: 20151111, end: 20210408
  11. VITAMIN D2 [Concomitant]
     Active Substance: ERGOCALCIFEROL
     Indication: Vitamin D deficiency
     Dosage: 50,000 UNITS  EVERY 14 DAYS
     Route: 048
  12. ELIQUIS [Concomitant]
     Active Substance: APIXABAN
     Indication: Sickle cell disease
     Dosage: 5 MG, 2X/DAY
     Route: 048
     Dates: start: 20210317, end: 20211115
  13. ELIQUIS [Concomitant]
     Active Substance: APIXABAN
     Indication: Thrombosis prophylaxis
  14. MORPHINE [Concomitant]
     Active Substance: MORPHINE
     Indication: Sickle cell disease
     Dosage: ONCE
     Route: 042
     Dates: start: 20210730, end: 20210730

REACTIONS (1)
  - Tooth impacted [Recovered/Resolved]

NARRATIVE: CASE EVENT DATE: 20210511
